FAERS Safety Report 13184542 (Version 4)
Quarter: 2017Q1

REPORT INFORMATION
  Report Type: Report from Study
  Country: US (occurrence: US)
  Receive Date: 20170203
  Receipt Date: 20170324
  Transmission Date: 20170428
  Serious: Yes (Other)
  Sender: FDA-Public Use
  Company Number: US-BAYER-2017-017442

PATIENT
  Age: 85 Year
  Sex: Male

DRUGS (7)
  1. DOCUSATE SODIUM. [Concomitant]
     Active Substance: DOCUSATE SODIUM
  2. TAMSULOSIN HYDROCHLORIDE. [Concomitant]
     Active Substance: TAMSULOSIN HYDROCHLORIDE
  3. NEXAVAR [Suspect]
     Active Substance: SORAFENIB
     Indication: HEPATIC CANCER
     Dosage: 400 MG, BID
     Route: 048
     Dates: start: 20170119
  4. SAW PALMETTO [Concomitant]
     Active Substance: SAW PALMETTO
  5. PRAVASTATIN SODIUM. [Concomitant]
     Active Substance: PRAVASTATIN SODIUM
  6. SENNOSIDE [Concomitant]
     Active Substance: SENNOSIDES
  7. MULTIVITAMIN [Concomitant]
     Active Substance: VITAMINS

REACTIONS (5)
  - Oropharyngeal pain [None]
  - Ageusia [None]
  - Blood count abnormal [None]
  - Abdominal cavity drainage [None]
  - Oral mucosal erythema [None]

NARRATIVE: CASE EVENT DATE: 20170125
